FAERS Safety Report 7835453-X (Version None)
Quarter: 2011Q4

REPORT INFORMATION
  Report Type: 
  Country: None (occurrence: None)
  Receive Date: 20111024
  Receipt Date: 20111010
  Transmission Date: 20120403
  Serious: Yes (Other)
  Sender: FDA-Public Use
  Company Number: US-ASTRAZENECA-2011SE60992

PATIENT
  Sex: Female

DRUGS (3)
  1. FASLODEX [Suspect]
     Indication: NON-SMALL CELL LUNG CANCER
     Route: 030
     Dates: start: 20110610
  2. FASLODEX [Suspect]
     Route: 030
  3. TARCEVA [Suspect]
     Indication: NON-SMALL CELL LUNG CANCER
     Route: 065
     Dates: start: 20110610

REACTIONS (9)
  - HYPOSMIA [None]
  - RASH PUSTULAR [None]
  - WEIGHT INCREASED [None]
  - SCAB [None]
  - PLEURAL EFFUSION [None]
  - HYPOGEUSIA [None]
  - MUCOUS MEMBRANE DISORDER [None]
  - ABDOMINAL PAIN UPPER [None]
  - ABDOMINAL DISTENSION [None]
